FAERS Safety Report 4329929-X (Version None)
Quarter: 2004Q1

REPORT INFORMATION
  Report Type: 
  Country: None (occurrence: None)
  Receive Date: 20040329
  Receipt Date: 20031027
  Transmission Date: 20041129
  Serious: Yes (Death)
  Sender: FDA-Public Use
  Company Number: ESP-BUS-150

PATIENT
  Age: 44 Year
  Sex: Male

DRUGS (11)
  1. BUSULFEX [Suspect]
     Indication: CHRONIC MYELOID LEUKAEMIA
     Dosage: 40 MG QID IV
     Route: 042
     Dates: start: 20030221, end: 20030224
  2. ATGAM [Concomitant]
  3. CYCLOPHOSPHAMIDE [Concomitant]
  4. ANTITHYMOCYTE IG [Concomitant]
  5. PHENYTOIN [Concomitant]
  6. RAMOSETRON [Concomitant]
  7. ANTIBIOTICS [Concomitant]
  8. ANTIFUNGALS [Concomitant]
  9. IMMUNOSUPPRESSANTS [Concomitant]
  10. HEPARIN [Concomitant]
  11. GRASIN [Concomitant]

REACTIONS (5)
  - DELAYED ENGRAFTMENT [None]
  - LEUKOPENIA [None]
  - PNEUMONIA [None]
  - SEPSIS [None]
  - THROMBOCYTOPENIA [None]
